FAERS Safety Report 5720030-7 (Version None)
Quarter: 2008Q2

REPORT INFORMATION
  Report Type: 
  Country: None (occurrence: None)
  Receive Date: 20080424
  Receipt Date: 20080414
  Transmission Date: 20081010
  Serious: Yes (Other)
  Sender: FDA-Public Use
  Company Number: 2008AP000921

PATIENT
  Age: 50 Year
  Sex: Female

DRUGS (2)
  1. CYCLOSPORINE [Suspect]
     Indication: PYODERMA GANGRENOSUM
  2. PREDNISONE TAB [Concomitant]

REACTIONS (1)
  - IMMUNE SYSTEM DISORDER [None]
